FAERS Safety Report 5914169-0 (Version None)
Quarter: 2008Q4

REPORT INFORMATION
  Report Type: 
  Country: None (occurrence: None)
  Receive Date: 20081009
  Receipt Date: 20080918
  Transmission Date: 20090506
  Serious: Yes (Hospitalization)
  Sender: FDA-Public Use
  Company Number: US-ABBOTT-08P-163-0476983-00

PATIENT
  Sex: Male

DRUGS (3)
  1. RITONAVIR SOFT GELATIN CAPSULES [Suspect]
     Indication: HIV INFECTION
     Route: 048
     Dates: start: 20070828
  2. ABACAVIR SO4 + LAMIVUDINE TABLET [Concomitant]
     Indication: HIV INFECTION
     Dosage: 600/300MG
     Route: 048
     Dates: start: 20070828
  3. ATAZANAVIR CAPSULE [Concomitant]
     Indication: HIV INFECTION
     Dates: start: 20070828

REACTIONS (1)
  - CEREBROVASCULAR ACCIDENT [None]
